FAERS Safety Report 7020722-6 (Version None)
Quarter: 2010Q3

REPORT INFORMATION
  Report Type: 
  Country: None (occurrence: None)
  Receive Date: 20100928
  Receipt Date: 20100915
  Transmission Date: 20110219
  Serious: Yes (Other)
  Sender: FDA-Public Use
  Company Number: MSTR-NO-1007S-0262

PATIENT
  Age: 67 Year
  Sex: Male

DRUGS (1)
  1. METASTRON [Suspect]
     Indication: METASTATIC PAIN
     Dosage: SINGLE DOSE, I.V.
     Route: 042
     Dates: start: 20100607, end: 20100607

REACTIONS (8)
  - ABASIA [None]
  - BLADDER TAMPONADE [None]
  - CONDITION AGGRAVATED [None]
  - MALIGNANT NEOPLASM PROGRESSION [None]
  - METASTATIC CARCINOMA OF THE BLADDER [None]
  - METASTATIC PAIN [None]
  - PLATELET COUNT DECREASED [None]
  - SEPSIS [None]
